FAERS Safety Report 7715642-5 (Version None)
Quarter: 2011Q3

REPORT INFORMATION
  Report Type: 
  Country: None (occurrence: None)
  Receive Date: 20110829
  Receipt Date: 20110602
  Transmission Date: 20111222
  Serious: Yes (Other)
  Sender: FDA-Public Use
  Company Number: US-ROCHE-797792

PATIENT
  Age: 81 Year
  Sex: Female

DRUGS (1)
  1. BONIVA [Suspect]
     Dosage: DOSE 3 MG/ML
     Route: 065

REACTIONS (2)
  - BONE DENSITY ABNORMAL [None]
  - DRUG INEFFECTIVE [None]
